FAERS Safety Report 14507802 (Version 1)
Quarter: 2018Q1

REPORT INFORMATION
  Report Type: Report from Study
  Country: ES (occurrence: ES)
  Receive Date: 20180208
  Receipt Date: 20180208
  Transmission Date: 20180509
  Serious: Yes (Hospitalization)
  Sender: FDA-Public Use
  Company Number: ES-TAKEDA-2018TEU000601

PATIENT

DRUGS (1)
  1. FIBRINOGEN, THROMBIN [Suspect]
     Active Substance: FIBRINOGEN HUMAN\THROMBIN HUMAN
     Indication: GASTROINTESTINAL ANASTOMOTIC LEAK
     Dosage: UNK
     Route: 065

REACTIONS (1)
  - Peritoneal haemorrhage [Unknown]
